FAERS Safety Report 20756765 (Version 1)
Quarter: 2022Q2

REPORT INFORMATION
  Report Type: Report from Study
  Country: DE (occurrence: DE)
  Receive Date: 20220427
  Receipt Date: 20220427
  Transmission Date: 20220720
  Serious: Yes (Death, Other)
  Sender: FDA-Public Use
  Company Number: DE-ASTELLAS-2022US015078

PATIENT

DRUGS (1)
  1. TACROLIMUS [Suspect]
     Active Substance: TACROLIMUS
     Indication: Renal transplant
     Dosage: 0.17 MG/KG, ONCE DAILY (IN THE MORNING)
     Route: 048

REACTIONS (3)
  - Duodenal ulcer [Fatal]
  - Pancreatitis [Fatal]
  - Sepsis [Fatal]
